FAERS Safety Report 7316199-3 (Version None)
Quarter: 2011Q1

REPORT INFORMATION
  Report Type: 
  Country: None (occurrence: None)
  Receive Date: 20110225
  Receipt Date: 20110212
  Transmission Date: 20110831
  Serious: No
  Sender: FDA-Public Use
  Company Number: US-B.I. PHARMACEUTICALS,INC./RIDGEFIELD-2011-BP-02508BP

PATIENT
  Sex: Female

DRUGS (15)
  1. LIPITOR [Concomitant]
     Indication: BLOOD CHOLESTEROL INCREASED
  2. PROTONIX [Concomitant]
     Indication: GASTROOESOPHAGEAL REFLUX DISEASE
  3. PAXIL [Concomitant]
     Indication: DEPRESSION
  4. GLYBURIDE [Concomitant]
     Indication: DIABETES MELLITUS
  5. BENEFIBER [Concomitant]
     Indication: CONSTIPATION
  6. NORVASC [Concomitant]
     Indication: HYPERTENSION
  7. ISOSORBIDE DINITRATE [Concomitant]
     Indication: CARDIAC DISORDER
  8. PRADAXA [Suspect]
     Indication: ATRIAL FIBRILLATION
     Dosage: 300 MG
     Route: 048
     Dates: start: 20101213, end: 20110101
  9. LASIX [Concomitant]
     Indication: HYPERTENSION
  10. CELEBREX [Concomitant]
     Indication: ARTHRITIS
  11. MULTIVITAMIN [Concomitant]
     Indication: PROPHYLAXIS
  12. COLACE [Concomitant]
     Indication: CONSTIPATION
  13. PRADAXA [Suspect]
     Indication: CARDIAC PACEMAKER INSERTION
  14. SYNTHROID [Concomitant]
     Indication: HYPOTHYROIDISM
  15. BENICAR [Concomitant]
     Indication: HYPERTENSION

REACTIONS (9)
  - CHEST PAIN [None]
  - LACRIMATION INCREASED [None]
  - NASAL CONGESTION [None]
  - FLUID RETENTION [None]
  - DYSPHONIA [None]
  - NASOPHARYNGITIS [None]
  - URINARY RETENTION [None]
  - ALOPECIA [None]
  - OROPHARYNGEAL PAIN [None]
